FAERS Safety Report 7647802-6 (Version None)
Quarter: 2011Q3

REPORT INFORMATION
  Report Type: 
  Country: None (occurrence: None)
  Receive Date: 20110801
  Receipt Date: 20110721
  Transmission Date: 20111222
  Serious: Yes (Other)
  Sender: FDA-Public Use
  Company Number: JP-MERCK-1106USA03805

PATIENT
  Age: 79 Year
  Sex: Male
  Weight: 48 kg

DRUGS (11)
  1. MAGMITT [Concomitant]
     Indication: CONSTIPATION
     Route: 048
     Dates: start: 20110614
  2. ACLACINON [Concomitant]
     Indication: LEUKAEMIA
     Route: 042
     Dates: start: 20110607, end: 20110610
  3. AMARYL [Concomitant]
     Indication: DIABETES MELLITUS
     Route: 048
     Dates: start: 20110608
  4. JANUVIA [Suspect]
     Indication: TYPE 2 DIABETES MELLITUS
     Route: 048
     Dates: start: 20110614, end: 20110615
  5. CYCLOCIDE [Concomitant]
     Indication: LEUKAEMIA
     Route: 058
     Dates: start: 20110607, end: 20110620
  6. LEVOFLOXACIN [Concomitant]
     Indication: INFECTION PROPHYLAXIS
     Route: 048
     Dates: start: 20110604
  7. ALLOPURINOL [Concomitant]
     Indication: PROPHYLAXIS
     Route: 048
     Dates: start: 20110604
  8. LEVOFLOXACIN [Concomitant]
     Indication: ENDOPHTHALMITIS
     Route: 048
     Dates: start: 20110606
  9. DIFLUCAN [Concomitant]
     Indication: INFECTION PROPHYLAXIS
     Route: 048
     Dates: start: 20110604
  10. PEPCID RPD [Concomitant]
     Indication: GASTRITIS PROPHYLAXIS
     Route: 048
     Dates: start: 20110604
  11. RAMELTEON [Concomitant]
     Indication: LEUKAEMIA
     Route: 042
     Dates: start: 20110607, end: 20110610

REACTIONS (1)
  - HEPATIC FUNCTION ABNORMAL [None]
